FAERS Safety Report 10683436 (Version 6)
Quarter: 2015Q2

REPORT INFORMATION
  Report Type: Spontaneous
  Country: US (occurrence: US)
  Receive Date: 20141230
  Receipt Date: 20150623
  Transmission Date: 20150821
  Serious: Yes (Disabling)
  Sender: FDA-Public Use
  Company Number: US-009507513-1205USA01865

PATIENT
  Sex: Male
  Weight: 90.7 kg

DRUGS (2)
  1. PROPECIA [Suspect]
     Active Substance: FINASTERIDE
     Indication: ALOPECIA
     Dosage: 1 MG, QD
     Route: 048
     Dates: start: 19980227, end: 2010
  2. PROPECIA [Suspect]
     Active Substance: FINASTERIDE
     Indication: ANDROGENETIC ALOPECIA

REACTIONS (28)
  - Blood pressure increased [Recovering/Resolving]
  - Empty sella syndrome [Unknown]
  - Ejaculation failure [Not Recovered/Not Resolved]
  - Blood testosterone decreased [Unknown]
  - Irritable bowel syndrome [Unknown]
  - Parotitis [Unknown]
  - Sports injury [Unknown]
  - Erectile dysfunction [Not Recovered/Not Resolved]
  - Cluster headache [Unknown]
  - Sleep disorder [Unknown]
  - Back disorder [Unknown]
  - Drug dependence [Unknown]
  - Cognitive disorder [Not Recovered/Not Resolved]
  - Sexual dysfunction [Not Recovered/Not Resolved]
  - Secondary hypogonadism [Unknown]
  - Drug ineffective [Unknown]
  - Loss of libido [Unknown]
  - Anxiety [Recovering/Resolving]
  - Depression [Recovering/Resolving]
  - Back pain [Unknown]
  - Gastrooesophageal reflux disease [Recovering/Resolving]
  - Wisdom teeth removal [Unknown]
  - Eczema [Unknown]
  - Libido decreased [Unknown]
  - Ejaculation disorder [Not Recovered/Not Resolved]
  - Libido decreased [Not Recovered/Not Resolved]
  - Stress at work [Unknown]
  - Back injury [Unknown]

NARRATIVE: CASE EVENT DATE: 1999
